FAERS Safety Report 25809052 (Version 2)
Quarter: 2025Q4

REPORT INFORMATION
  Report Type: Spontaneous
  Country: US (occurrence: US)
  Receive Date: 20250916
  Receipt Date: 20251006
  Transmission Date: 20260118
  Serious: No
  Sender: BAUSCH AND LOMB
  Company Number: US-BAUSCHBL-2025BNL016003

PATIENT
  Age: 78 Year
  Sex: Male

DRUGS (2)
  1. BRINZOLAMIDE [Suspect]
     Active Substance: BRINZOLAMIDE
     Indication: Glaucoma
     Route: 047
     Dates: start: 202508
  2. BRINZOLAMIDE [Suspect]
     Active Substance: BRINZOLAMIDE

REACTIONS (7)
  - Burning sensation [Unknown]
  - Ocular hyperaemia [Unknown]
  - Paraesthesia oral [Unknown]
  - Herpes zoster [Unknown]
  - Product quality issue [Unknown]
  - Liquid product physical issue [Unknown]
  - Product container issue [Unknown]

NARRATIVE: CASE EVENT DATE: 20250101
